FAERS Safety Report 7097236-0 (Version None)
Quarter: 2010Q4

REPORT INFORMATION
  Report Type: 
  Country: None (occurrence: None)
  Receive Date: 20101111
  Receipt Date: 20091119
  Transmission Date: 20110411
  Serious: No
  Sender: FDA-Public Use
  Company Number: US-KINGPHARMUSA00001-K200901480

PATIENT
  Sex: Female
  Weight: 61.224 kg

DRUGS (1)
  1. EPIPEN [Suspect]
     Dosage: 0.3 MG, SINGLE
     Dates: start: 20091021, end: 20091021

REACTIONS (1)
  - ACCIDENTAL EXPOSURE [None]
